FAERS Safety Report 25105870 (Version 1)
Quarter: 2025Q1

REPORT INFORMATION
  Report Type: Spontaneous
  Country: US (occurrence: US)
  Receive Date: 20250321
  Receipt Date: 20250321
  Transmission Date: 20250408
  Serious: No
  Sender: SANDOZ
  Company Number: US-SANDOZ-SDZ2025US017562

PATIENT
  Age: 52 Year
  Sex: Female

DRUGS (1)
  1. HYRIMOZ [Suspect]
     Active Substance: ADALIMUMAB-ADAZ
     Indication: Product used for unknown indication
     Route: 065

REACTIONS (3)
  - Rash macular [Not Recovered/Not Resolved]
  - Rash [Not Recovered/Not Resolved]
  - Exfoliative rash [Not Recovered/Not Resolved]

NARRATIVE: CASE EVENT DATE: 20240501
